FAERS Safety Report 5975224-2 (Version None)
Quarter: 2008Q4

REPORT INFORMATION
  Report Type: 
  Country: None (occurrence: None)
  Receive Date: 20081202
  Receipt Date: 20080626
  Transmission Date: 20090506
  Serious: No
  Sender: FDA-Public Use
  Company Number: US-BAYER-200812538BCC

PATIENT
  Age: 85 Year
  Sex: Female
  Weight: 48 kg

DRUGS (6)
  1. ALEVE (CAPLET) [Suspect]
     Indication: BACK PAIN
     Route: 048
     Dates: start: 20080422, end: 20080610
  2. ASPIRIN [Suspect]
     Indication: DRUG USE FOR UNKNOWN INDICATION
     Dosage: TOTAL DAILY DOSE: 81 MG  UNIT DOSE: 81 MG
     Route: 048
  3. LOVASTATIN [Concomitant]
  4. AMLODIPINE BESYLATE [Concomitant]
  5. TOPROL-XL [Concomitant]
  6. TYLENOL (CAPLET) [Concomitant]

REACTIONS (1)
  - CONTUSION [None]
